FAERS Safety Report 14946238 (Version 4)
Quarter: 2019Q2

REPORT INFORMATION
  Report Type: Report from Study
  Country: US (occurrence: US)
  Receive Date: 20180529
  Receipt Date: 20190624
  Transmission Date: 20190711
  Serious: No
  Sender: FDA-Public Use
  Company Number: US-SA-2017SA109208

PATIENT
  Age: 63 Year
  Sex: Female

DRUGS (3)
  1. GABAPENTIN. [Concomitant]
     Active Substance: GABAPENTIN
  2. TERIFLUNOMIDE. [Suspect]
     Active Substance: TERIFLUNOMIDE
     Indication: MULTIPLE SCLEROSIS
     Dosage: 14 MG, QD
     Route: 048
     Dates: start: 20170306
  3. AMPYRA [Concomitant]
     Active Substance: DALFAMPRIDINE

REACTIONS (8)
  - Oral pain [Unknown]
  - Infection [Not Recovered/Not Resolved]
  - Dental operation [Unknown]
  - Alopecia [Not Recovered/Not Resolved]
  - Alveolar osteitis [Unknown]
  - Trigeminal neuralgia [Unknown]
  - Hypoaesthesia [Not Recovered/Not Resolved]
  - Urinary tract infection [Not Recovered/Not Resolved]

NARRATIVE: CASE EVENT DATE: 2017
